FAERS Safety Report 25479181 (Version 2)
Quarter: 2025Q3

REPORT INFORMATION
  Report Type: Spontaneous
  Country: EU (occurrence: EU)
  Receive Date: 20250625
  Receipt Date: 20250811
  Transmission Date: 20251021
  Serious: Yes (Hospitalization, Other)
  Sender: MYLAN
  Company Number: EU-THEA-2025001502

PATIENT
  Age: 7 Year
  Sex: Male

DRUGS (2)
  1. CETIRIZINE [Suspect]
     Active Substance: CETIRIZINE HYDROCHLORIDE
     Indication: Vernal keratoconjunctivitis
     Dosage: 10 GTT DROPS, QD, 10 DROPS ONCE A DAY
  2. KETOTIFEN [Suspect]
     Active Substance: KETOTIFEN
     Indication: Vernal keratoconjunctivitis
     Dosage: 1 DOSAGE FORM, BID,1 DROP TWICE A DAY FOR TWO WEEKS

REACTIONS (2)
  - Dry eye [Unknown]
  - Drug ineffective [Unknown]
